FAERS Safety Report 7833779-7 (Version None)
Quarter: 2011Q4

REPORT INFORMATION
  Report Type: 
  Country: None (occurrence: None)
  Receive Date: 20111024
  Receipt Date: 20111019
  Transmission Date: 20120403
  Serious: Yes (Death)
  Sender: FDA-Public Use
  Company Number: GB-ROCHE-GNE319028

PATIENT
  Sex: Male

DRUGS (7)
  1. LUCENTIS [Suspect]
     Indication: PRODUCT USED FOR UNKNOWN INDICATION
     Route: 050
  2. GLYCERYL TRINITRATE SPRAY [Concomitant]
     Dates: start: 20101001
  3. BISOPROLOL [Concomitant]
     Dates: start: 20101001
  4. OMEPRAZOLE [Concomitant]
     Dates: start: 20101001
  5. CLOPIDOGREL [Concomitant]
     Dates: start: 20101001
  6. NICORANDIL [Concomitant]
     Dates: start: 20101001
  7. ALBUTEROL [Concomitant]
     Dates: start: 20101001

REACTIONS (1)
  - DEATH [None]
